FAERS Safety Report 25774244 (Version 1)
Quarter: 2025Q3

REPORT INFORMATION
  Report Type: Spontaneous
  Country: US (occurrence: US)
  Receive Date: 20250908
  Receipt Date: 20250908
  Transmission Date: 20251020
  Serious: No
  Sender: GALDERMA
  Company Number: US-GALDERMA-US2025015144

PATIENT

DRUGS (1)
  1. NEMLUVIO [Suspect]
     Active Substance: NEMOLIZUMAB-ILTO
     Indication: Dermatitis atopic
     Route: 058
     Dates: start: 20250807, end: 20250807

REACTIONS (4)
  - Pruritus [Unknown]
  - Somnolence [Unknown]
  - Fatigue [Unknown]
  - Asthenopia [Unknown]

NARRATIVE: CASE EVENT DATE: 20250101
